FAERS Safety Report 5642492-6 (Version None)
Quarter: 2008Q1

REPORT INFORMATION
  Report Type: 
  Country: None (occurrence: None)
  Receive Date: 20080227
  Receipt Date: 20080227
  Transmission Date: 20080703
  Serious: Yes (Disabling, Other)
  Sender: FDA-Public Use
  Company Number: None

PATIENT
  Age: 79 Year
  Sex: Female

DRUGS (6)
  1. FOSAMAX [Suspect]
     Indication: OSTEOPOROSIS
     Dosage: 10MG/DAILY   : 70 MG/WKLY
     Dates: start: 19980101, end: 20020101
  2. FOSAMAX [Suspect]
     Indication: OSTEOPOROSIS
     Dosage: 10MG/DAILY   : 70 MG/WKLY
     Dates: start: 20020101, end: 20060101
  3. INDERAL [Concomitant]
  4. NEURONTIN [Concomitant]
  5. MYSOLINE [Concomitant]
  6. SYNTHROID [Concomitant]

REACTIONS (1)
  - OSTEONECROSIS [None]
